FAERS Safety Report 18456344 (Version 2)
Quarter: 2020Q4

REPORT INFORMATION
  Report Type: Report from Study
  Country: US (occurrence: US)
  Receive Date: 20201103
  Receipt Date: 20201111
  Transmission Date: 20210114
  Serious: Yes (Other)
  Sender: FDA-Public Use
  Company Number: US-PFIZER INC-2020421385

PATIENT
  Age: 29 Year
  Sex: Male

DRUGS (7)
  1. MEPERIDINE HCL [Suspect]
     Active Substance: MEPERIDINE HYDROCHLORIDE
     Dosage: 150 MG (Q1H, TOTAL DOSE: 2.4 G/ 24HR)
     Route: 042
  2. MEPERIDINE HCL [Suspect]
     Active Substance: MEPERIDINE HYDROCHLORIDE
     Dosage: 150 MG (Q1H, TOTAL DOSE: 5.2 G/ 53 HR)
     Route: 042
  3. MEPERIDINE HCL [Suspect]
     Active Substance: MEPERIDINE HYDROCHLORIDE
     Dosage: 100 MG (Q1H,  TOTAL DOSE: 1.5 G/ 50 HR))
     Route: 030
  4. PROMETHAZINE [Concomitant]
     Active Substance: PROMETHAZINE HYDROCHLORIDE
     Dosage: 25 MG (EVERY HOUR)
     Route: 042
  5. MEPERIDINE HCL [Suspect]
     Active Substance: MEPERIDINE HYDROCHLORIDE
     Dosage: 100 MG (Q1H,  TOTAL DOSE: 1.5 G/ 15 HR))
     Route: 030
  6. MEPERIDINE HCL [Suspect]
     Active Substance: MEPERIDINE HYDROCHLORIDE
     Dosage: 100 MG (Q1H,  TOTAL DOSE: 1.3 G/ 15 HR)
     Route: 042
  7. MEPERIDINE HCL [Suspect]
     Active Substance: MEPERIDINE HYDROCHLORIDE
     Indication: SICKLE CELL DISEASE
     Dosage: 100 MG (Q1H) (4.7 G/48H)
     Route: 042

REACTIONS (1)
  - Generalised tonic-clonic seizure [Unknown]
